FAERS Safety Report 9346641 (Version 1)
Quarter: 2013Q2

REPORT INFORMATION
  Report Type: Spontaneous
  Country: US (occurrence: US)
  Receive Date: 20130613
  Receipt Date: 20130613
  Transmission Date: 20140414
  Serious: Yes (Other)
  Sender: FDA-Public Use
  Company Number: US-BAYER-2013-071933

PATIENT
  Age: 24 Year
  Sex: Female
  Weight: 99.77 kg

DRUGS (16)
  1. OCELLA [Suspect]
  2. YAZ [Suspect]
  3. YASMIN [Suspect]
  4. RANITIDINE [Concomitant]
     Dosage: 150 MG, UNK
  5. HYDROXYZINE [Concomitant]
     Dosage: 50 MG, UNK
  6. PRENATAL VITAMINS [Concomitant]
  7. CERVIDIL [DINOPROSTONE] [Concomitant]
     Dosage: 10 MG, UNK
     Route: 067
  8. FENTANYL [Concomitant]
  9. PROMETHAZINE [Concomitant]
     Dosage: 25 MG, UNK
  10. NALBUPHINE [Concomitant]
     Dosage: 10 MG, UNK
  11. OXYTOCIN [Concomitant]
     Dosage: 30 UNITS
  12. METHYLDOPA [Concomitant]
     Dosage: 500 MG, UNK
  13. ALDOMET [Concomitant]
     Dosage: 500 MG, UNK
  14. SENOKOT [Concomitant]
  15. DIPHENHYDRAMINE [Concomitant]
     Dosage: 25 MG, UNK
  16. LORTAB [Concomitant]
     Dosage: 5 MG / 500 MG

REACTIONS (1)
  - Cholecystitis chronic [None]
